FAERS Safety Report 19798851 (Version 1)
Quarter: 2021Q3

REPORT INFORMATION
  Report Type: Spontaneous
  Country: FR (occurrence: FR)
  Receive Date: 20210907
  Receipt Date: 20210907
  Transmission Date: 20211014
  Serious: Yes (Hospitalization)
  Sender: FDA-Public Use
  Company Number: FR-ACCORD-237602

PATIENT
  Age: 47 Year
  Sex: Male
  Weight: 92 kg

DRUGS (9)
  1. ENDOXAN [Suspect]
     Active Substance: CYCLOPHOSPHAMIDE
     Indication: HODGKIN^S DISEASE
     Dosage: 2500MG
     Route: 041
     Dates: start: 20210713, end: 20210713
  2. DOXORUBICIN [Suspect]
     Active Substance: DOXORUBICIN
     Indication: HODGKIN^S DISEASE
     Dosage: 70MG
     Route: 041
     Dates: start: 20210713, end: 20210713
  3. PROCARBAZINE [Suspect]
     Active Substance: PROCARBAZINE
     Indication: HODGKIN^S DISEASE
     Dosage: 200MG PER DAY FOR 7 DAYS
     Route: 048
     Dates: start: 20210623, end: 20210629
  4. ETOPOSIDE. [Suspect]
     Active Substance: ETOPOSIDE
     Indication: HODGKIN^S DISEASE
     Dosage: 400MG ON D1
     Route: 041
     Dates: start: 20210713, end: 20210713
  5. BLEOMYCIN [Suspect]
     Active Substance: BLEOMYCIN SULFATE
     Indication: HODGKIN^S DISEASE
     Dosage: 20MG ON D8
     Route: 041
     Dates: start: 20210629, end: 20210629
  6. METHYLPREDNISOLONE. [Suspect]
     Active Substance: METHYLPREDNISOLONE
     Indication: HODGKIN^S DISEASE
     Dosage: 80MG ON D1
     Route: 041
     Dates: start: 20210622, end: 20210622
  7. PREDNISONE. [Suspect]
     Active Substance: PREDNISONE
     Indication: HODGKIN^S DISEASE
     Dosage: 80MG PER DAY FOR 6 DAYS
     Route: 048
     Dates: start: 20210714, end: 20210719
  8. VINCRISTINE [Suspect]
     Active Substance: VINCRISTINE
     Indication: HODGKIN^S DISEASE
     Dosage: 2MG ON D8
     Route: 041
     Dates: start: 20210629, end: 20210629
  9. COMIRNATY [Suspect]
     Active Substance: TOZINAMERAN
     Indication: COVID-19 IMMUNISATION
     Route: 030
     Dates: start: 20210614, end: 20210614

REACTIONS (2)
  - Coronary artery thrombosis [Recovering/Resolving]
  - Myocardial infarction [Recovering/Resolving]

NARRATIVE: CASE EVENT DATE: 20210719
